FAERS Safety Report 13568704 (Version 7)
Quarter: 2025Q4

REPORT INFORMATION
  Report Type: Spontaneous
  Country: TR (occurrence: TR)
  Receive Date: 20170522
  Receipt Date: 20251121
  Transmission Date: 20260118
  Serious: Yes (Death, Hospitalization, Other)
  Sender: ASTELLAS
  Company Number: TR-ASTELLAS-2017US019216

PATIENT
  Age: 54 Year
  Sex: Male

DRUGS (21)
  1. PROGRAF [Interacting]
     Active Substance: TACROLIMUS
     Indication: Transplant
     Dosage: TACROLIMUS BLOOD LEVELS BETWEEN 15 AND 20 NG/ML FOR THE FIRST 3 MONTHS.
     Route: 065
     Dates: start: 2013, end: 2013
  2. PROGRAF [Interacting]
     Active Substance: TACROLIMUS
     Dosage: MAINTAINING A BLOOD LEVEL OF 2-3 NG/ML)
     Route: 065
  3. PROGRAF [Interacting]
     Active Substance: TACROLIMUS
     Dosage: TEMPORARY INCREASE OF TACROLIMUS DOSAGE
     Route: 065
     Dates: start: 201406, end: 2014
  4. PROGRAF [Interacting]
     Active Substance: TACROLIMUS
     Dosage: TAPERED TO 7-10 NG/ML 6 MONTHS POSTOPERATIVELY
     Route: 065
     Dates: start: 201402, end: 201406
  5. MYCOPHENOLATE MOFETIL [Suspect]
     Active Substance: MYCOPHENOLATE MOFETIL
     Indication: Transplant
     Route: 065
     Dates: start: 2013, end: 201402
  6. MYCOPHENOLATE MOFETIL [Suspect]
     Active Substance: MYCOPHENOLATE MOFETIL
     Route: 065
     Dates: start: 201402, end: 201405
  7. PREDNISOLONE [Suspect]
     Active Substance: PREDNISOLONE
     Indication: Transplant
     Dosage: 1 WEEK POSTOPERATIVELY
     Route: 065
     Dates: start: 20130830, end: 2014
  8. PREDNISOLONE [Suspect]
     Active Substance: PREDNISOLONE
     Dosage: 6 MONTHS POSTOPERATIVELY
     Route: 065
     Dates: start: 2014
  9. PREDNISOLONE [Suspect]
     Active Substance: PREDNISOLONE
     Route: 065
  10. PREDNISOLONE [Suspect]
     Active Substance: PREDNISOLONE
     Dosage: ON THE DAY OF SURGERY
     Route: 065
     Dates: start: 20130823, end: 20130830
  11. PREDNISOLONE [Suspect]
     Active Substance: PREDNISOLONE
     Route: 065
  12. RAPAMYCIN [Interacting]
     Active Substance: SIROLIMUS
     Indication: Immunosuppressant drug level decreased
     Dosage: STOPPED ONE WEEK LATER
     Route: 065
  13. RAPAMYCIN [Interacting]
     Active Substance: SIROLIMUS
     Indication: Neoplasm malignant
  14. NYSTATIN [Concomitant]
     Active Substance: NYSTATIN
     Indication: Prophylaxis
     Route: 048
  15. VALACYCLOVIR [Concomitant]
     Active Substance: VALACYCLOVIR HYDROCHLORIDE
     Indication: Prophylaxis
     Route: 048
  16. PYRIMETHAMINE\SULFADOXINE [Concomitant]
     Active Substance: PYRIMETHAMINE\SULFADOXINE
     Indication: Prophylaxis
     Route: 065
  17. THIOPENTAL SODIUM [Concomitant]
     Active Substance: THIOPENTAL SODIUM
     Indication: Anaesthesia
     Route: 065
  18. FENTANYL [Concomitant]
     Active Substance: FENTANYL
     Indication: Anaesthesia
     Route: 065
  19. ROCURONIUM BROMIDE [Concomitant]
     Active Substance: ROCURONIUM BROMIDE
     Indication: Anaesthesia
     Route: 065
  20. HEPARIN [Concomitant]
     Active Substance: HEPARIN SODIUM
     Indication: Prophylaxis
     Route: 058
  21. LAPINE T-LYMPHOCYTE IMMUNE GLOBULIN [Concomitant]
     Active Substance: LAPINE T-LYMPHOCYTE IMMUNE GLOBULIN
     Indication: Transplant
     Dosage: WAS STOPPED ON DAYS 7-10
     Route: 065
     Dates: start: 20130823

REACTIONS (15)
  - Squamous cell carcinoma [Fatal]
  - Diffuse large B-cell lymphoma [Fatal]
  - Non-Hodgkin^s lymphoma stage III [Fatal]
  - Multiple organ dysfunction syndrome [Fatal]
  - Acute respiratory distress syndrome [Fatal]
  - Bronchopulmonary aspergillosis [Fatal]
  - Aspergillus infection [Fatal]
  - Sepsis [Fatal]
  - Haemodynamic instability [Unknown]
  - Anaemia [Unknown]
  - Hypotension [Unknown]
  - Transplant rejection [Unknown]
  - Off label use [Unknown]
  - Drug interaction [Unknown]
  - Metabolic disorder [Fatal]

NARRATIVE: CASE EVENT DATE: 20130823
